FAERS Safety Report 15845766 (Version 1)
Quarter: 2019Q1

REPORT INFORMATION
  Report Type: Spontaneous
  Country: ES (occurrence: ES)
  Receive Date: 20190120
  Receipt Date: 20190120
  Transmission Date: 20190417
  Serious: Yes (Other)
  Sender: FDA-Public Use
  Company Number: ES-AUROBINDO-AUR-APL-2019-001189

PATIENT
  Age: 59 Year
  Sex: Male

DRUGS (9)
  1. ATORVASTATINA                      /01326101/ [Concomitant]
     Active Substance: ATORVASTATIN
     Indication: HYPERLIPIDAEMIA
     Dosage: UNK UNK, DAILY
     Route: 048
  2. LINEZOLID. [Concomitant]
     Active Substance: LINEZOLID
     Indication: WOUND
     Dosage: 600 MILLIGRAM, TWO TIMES A DAY
     Route: 048
     Dates: start: 20180220, end: 20180227
  3. METFORMIN [Concomitant]
     Active Substance: METFORMIN HYDROCHLORIDE
     Indication: DIABETES MELLITUS
     Dosage: 850 MILLIGRAM, TWO TIMES A DAY
     Route: 048
  4. RAMIPRIL. [Concomitant]
     Active Substance: RAMIPRIL
     Indication: HYPERTENSION
     Dosage: UNK UNK, DAILY
     Route: 048
  5. ADIRO [Concomitant]
     Active Substance: ASPIRIN
     Indication: CARDIOVASCULAR EVENT PROPHYLAXIS
     Dosage: 100 MILLIGRAM, DAILY
     Route: 048
  6. ESCITALOPRAM [Concomitant]
     Active Substance: ESCITALOPRAM OXALATE
     Indication: DEPRESSION
     Dosage: 10 MILLIGRAM, DAILY
     Route: 048
  7. ERTAPENEM. [Suspect]
     Active Substance: ERTAPENEM SODIUM
     Indication: WOUND
     Dosage: 1 GRAM, DAILY
     Route: 042
     Dates: start: 20180220, end: 20180225
  8. APIDRA SOLOSTAR [Concomitant]
     Active Substance: INSULIN GLULISINE
     Indication: DIABETES MELLITUS
     Dosage: UNK,ACCORDING TO GLUCEMIA
     Route: 058
  9. LANTUS [Concomitant]
     Active Substance: INSULIN GLARGINE
     Indication: DIABETES MELLITUS
     Dosage: 40 UI, DAILY
     Route: 058

REACTIONS (1)
  - Tonic convulsion [Recovered/Resolved]

NARRATIVE: CASE EVENT DATE: 20180221
